FAERS Safety Report 8372284-9 (Version None)
Quarter: 2012Q2

REPORT INFORMATION
  Report Type: 
  Country: None (occurrence: None)
  Receive Date: 20120521
  Receipt Date: 20120515
  Transmission Date: 20120825
  Serious: Yes (Death)
  Sender: FDA-Public Use
  Company Number: GB-AMGEN-GBRCT2011050021

PATIENT
  Sex: Male

DRUGS (2)
  1. ETANERCEPT [Suspect]
     Indication: ANKYLOSING SPONDYLITIS
     Dosage: 25 MG, 2 TIMES/WK
     Dates: start: 20060119, end: 20080910
  2. ETANERCEPT [Suspect]
     Dosage: 25 MG, 2X/WEEK
     Dates: start: 20060119, end: 20080910

REACTIONS (1)
  - TRANSITIONAL CELL CARCINOMA METASTATIC [None]
